FAERS Safety Report 15844406 (Version 1)
Quarter: 2019Q1

REPORT INFORMATION
  Report Type: Spontaneous
  Country: US (occurrence: US)
  Receive Date: 20190118
  Receipt Date: 20190118
  Transmission Date: 20190417
  Serious: Yes (Hospitalization, Other)
  Sender: FDA-Public Use
  Company Number: US-009507513-1901USA004008

PATIENT
  Age: 21 Year
  Sex: Female
  Weight: 69.84 kg

DRUGS (8)
  1. NEXPLANON [Suspect]
     Active Substance: ETONOGESTREL
     Dosage: 1 DOSAGE FORM
     Route: 059
  2. CEPHALEXIN. [Suspect]
     Active Substance: CEPHALEXIN
     Indication: URINARY TRACT INFECTION
     Dosage: UNK
     Dates: start: 201807, end: 2018
  3. METRONIDAZOLE. [Suspect]
     Active Substance: METRONIDAZOLE
     Indication: URINARY TRACT INFECTION
     Dosage: 500 MILLIGRAM, 2X/DAY
     Dates: start: 20180917, end: 20180925
  4. VENLAFAXINE HYDROCHLORIDE. [Concomitant]
     Active Substance: VENLAFAXINE HYDROCHLORIDE
  5. MACROBID [Suspect]
     Active Substance: NITROFURANTOIN\NITROFURANTOIN MONOHYDRATE
     Indication: URINARY TRACT INFECTION
     Dosage: UNK
     Dates: start: 201809, end: 201809
  6. GENTAMICIN. [Suspect]
     Active Substance: GENTAMICIN
  7. CHOLIC ACID [Suspect]
     Active Substance: CHOLIC ACID
     Indication: XANTHOMATOSIS
     Dosage: 750 MILLIGRAM, 1X/DAY
     Route: 065
     Dates: start: 20140402, end: 201510
  8. CHOLBAM [Suspect]
     Active Substance: CHOLIC ACID
     Indication: XANTHOMATOSIS
     Dosage: 750 MILLIGRAM, ONCE DAILY
     Route: 048
     Dates: start: 201510

REACTIONS (22)
  - Posterior capsule opacification [Unknown]
  - Brain oedema [Unknown]
  - Dystonia [Recovered/Resolved]
  - Eye disorder [Unknown]
  - Muscle spasms [Unknown]
  - Optic nerve compression [Unknown]
  - Neck pain [Unknown]
  - Gastrooesophageal reflux disease [Recovered/Resolved]
  - Neuropathy peripheral [Unknown]
  - Noninfective encephalitis [Unknown]
  - Dyspepsia [Recovered/Resolved]
  - Intraocular pressure increased [Unknown]
  - Eye inflammation [Unknown]
  - Back pain [Unknown]
  - Idiopathic intracranial hypertension [Unknown]
  - Disease progression [Unknown]
  - Mental impairment [Unknown]
  - Dystonia [Not Recovered/Not Resolved]
  - Blindness [Unknown]
  - Urinary tract infection [Recovered/Resolved]
  - Headache [Unknown]
  - Drug effect incomplete [Unknown]

NARRATIVE: CASE EVENT DATE: 201807
